FAERS Safety Report 5848841-8 (Version None)
Quarter: 2008Q3

REPORT INFORMATION
  Report Type: 
  Country: None (occurrence: None)
  Receive Date: 20080818
  Receipt Date: 20080809
  Transmission Date: 20090109
  Serious: Yes (Other)
  Sender: FDA-Public Use
  Company Number: US-PFIZER INC-2008039216

PATIENT
  Sex: Male
  Weight: 84.4 kg

DRUGS (2)
  1. CHANTIX [Suspect]
     Indication: SMOKING CESSATION THERAPY
     Route: 048
     Dates: start: 20061201, end: 20061201
  2. ACETYLSALICYLIC ACID SRT [Concomitant]

REACTIONS (3)
  - IRRITABILITY [None]
  - MOOD ALTERED [None]
  - MOTOR DYSFUNCTION [None]
